FAERS Safety Report 18887078 (Version 1)
Quarter: 2021Q1

REPORT INFORMATION
  Report Type: Other
  Country: CN (occurrence: CN)
  Receive Date: 20210212
  Receipt Date: 20210212
  Transmission Date: 20210420
  Serious: Yes (Death)
  Sender: FDA-Public Use
  Company Number: CN-NAVINTA LLC-000115

PATIENT
  Sex: Female

DRUGS (7)
  1. SODIUM HYALURONATE [Concomitant]
     Active Substance: HYALURONATE SODIUM
     Indication: EPICONDYLITIS
     Dosage: 20 MG
  2. TRAMALIN [Concomitant]
     Indication: SPINAL OSTEOARTHRITIS
     Dosage: 10 MG
  3. ADENOSINE COBALTAMINE [Concomitant]
     Indication: EPICONDYLITIS
     Dosage: 3.0 G
  4. TRAMALIN [Concomitant]
     Indication: EPICONDYLITIS
     Dosage: 10 MG
  5. SODIUM HYALURONATE [Concomitant]
     Active Substance: HYALURONATE SODIUM
     Indication: SPINAL OSTEOARTHRITIS
     Dosage: 20 MG
  6. ROPIVACAINE. [Suspect]
     Active Substance: ROPIVACAINE HYDROCHLORIDE
     Indication: EPICONDYLITIS
     Dosage: 20 MG
  7. ROPIVACAINE. [Suspect]
     Active Substance: ROPIVACAINE HYDROCHLORIDE
     Indication: SPINAL OSTEOARTHRITIS
     Dosage: 20 MG

REACTIONS (3)
  - Toxicity to various agents [Fatal]
  - Dyspnoea [Fatal]
  - Chest discomfort [Fatal]
